FAERS Safety Report 10181547 (Version 1)
Quarter: 2014Q2

REPORT INFORMATION
  Report Type: Spontaneous
  Country: US (occurrence: US)
  Receive Date: 20140519
  Receipt Date: 20140519
  Transmission Date: 20141212
  Serious: Yes (Death)
  Sender: FDA-Public Use
  Company Number: US-GLAXOSMITHKLINE-A1073591A

PATIENT
  Age: 55 Year
  Sex: Male

DRUGS (10)
  1. VOTRIENT [Suspect]
     Indication: RENAL CANCER
     Dosage: 800MG PER DAY
     Route: 048
     Dates: start: 20140313
  2. AMBIEN [Concomitant]
  3. AMLODIPINE [Concomitant]
  4. PREDNISONE [Concomitant]
  5. HYDROMORPHONE [Concomitant]
  6. LEVOTHYROXINE [Concomitant]
  7. NAPROXEN [Concomitant]
  8. DEXILANT [Concomitant]
  9. POTASSIUM [Concomitant]
  10. METHADONE [Concomitant]

REACTIONS (1)
  - Death [Fatal]
